FAERS Safety Report 9391460 (Version 3)
Quarter: 2013Q4

REPORT INFORMATION
  Report Type: Spontaneous
  Country: US (occurrence: US)
  Receive Date: 20130709
  Receipt Date: 20131101
  Transmission Date: 20140711
  Serious: Yes (Death, Hospitalization, Other)
  Sender: FDA-Public Use
  Company Number: US-MPIJNJ-2013-05172

PATIENT
  Age: 63 Year
  Sex: Male
  Weight: 70.3 kg

DRUGS (29)
  1. VELCADE [Suspect]
     Indication: PLASMA CELL MYELOMA
     Dosage: 1.3 MG/KG, UNK
     Route: 058
     Dates: start: 20130221, end: 20130613
  2. DEXAMETHASON /00016001/ [Suspect]
     Indication: PLASMA CELL MYELOMA
     Dosage: 40 MG, ON DAYS 1-4, 9-12 AND 17-20
     Route: 048
     Dates: start: 20130215
  3. REVLIMID [Suspect]
     Indication: PLASMA CELL MYELOMA
     Dosage: 25 MG, ON DAYS 1-14 OF 21 DAYS
     Route: 048
     Dates: start: 20130514
  4. ZOFRAN                             /00955301/ [Concomitant]
  5. OXYGEN [Concomitant]
  6. ACYCLOVIR                          /00587301/ [Concomitant]
     Dosage: 400 MG, BID
     Route: 048
     Dates: start: 20130215
  7. ASPIRIN [Concomitant]
     Dosage: 325 MG, QD
     Route: 048
     Dates: start: 20071220
  8. CELEXA                             /00582602/ [Concomitant]
     Dosage: UNK
     Dates: start: 20130515
  9. COMPAZINE                          /00013302/ [Concomitant]
     Dosage: 10 MG, UNK
     Dates: start: 20130322
  10. DICLOFENAC SODIUM [Concomitant]
     Dosage: 75 MG, UNK
     Route: 048
     Dates: start: 20130515
  11. FENTANYL [Concomitant]
     Indication: PAIN
     Dosage: UNK
     Route: 062
     Dates: start: 20130429, end: 20130603
  12. FUROSEMIDE [Concomitant]
     Dosage: 20 MG, UNK
     Route: 048
     Dates: start: 20130523
  13. GABAPENTIN [Concomitant]
     Dosage: 300 MG, UNK
     Dates: start: 20130515
  14. LORAZEPAM [Concomitant]
     Indication: ANXIETY
     Dosage: 0.5 MG, UNK
     Route: 048
     Dates: start: 20130515, end: 20130515
  15. METOPROLOL TARTRATE [Concomitant]
     Dosage: 50 MG, UNK
     Route: 048
     Dates: start: 20130515
  16. MORPHINE SULFATE [Concomitant]
     Indication: PAIN
     Dosage: 30 MG, UNK
     Dates: start: 20130515
  17. NORVASC [Concomitant]
     Dosage: 10 MG, UNK
     Route: 048
     Dates: start: 20130515
  18. OMEPRAZOLE [Concomitant]
     Dosage: 40 MG, QD
     Route: 048
     Dates: start: 20130215, end: 20130215
  19. OXYCODONE HCL [Concomitant]
     Indication: PAIN
     Dosage: 10 MG, UNK
     Route: 048
     Dates: start: 20130405
  20. PROCHLORPERAZINE MALEATE [Concomitant]
     Indication: NAUSEA
     Dosage: 10 MG, UNK
     Route: 048
     Dates: start: 20130215, end: 20130215
  21. TRAZODONE ACTAVIS [Concomitant]
     Dosage: 150 MG, UNK
     Route: 048
     Dates: start: 20130515
  22. ZOMETA [Concomitant]
     Indication: METASTASES TO BONE
  23. METRONIDAZOLE [Concomitant]
     Dosage: 500 MG, TID
     Route: 048
     Dates: start: 20130614
  24. ROCEPHIN [Concomitant]
  25. LEVAQUIN [Concomitant]
     Indication: PNEUMONIA
  26. VANCOMYCIN [Concomitant]
     Indication: PNEUMONIA
  27. ZOSYN [Concomitant]
     Indication: PNEUMONIA
  28. FLAGYL                             /00012501/ [Concomitant]
     Indication: CLOSTRIDIUM DIFFICILE INFECTION
  29. PROPOFOL [Concomitant]
     Indication: SEDATION

REACTIONS (11)
  - Respiratory failure [Fatal]
  - Pathological fracture [Unknown]
  - Rib fracture [Unknown]
  - Pain [Unknown]
  - Clostridium difficile infection [Unknown]
  - Pneumonia [Fatal]
  - Bacteraemia [Unknown]
  - Arthritis bacterial [Unknown]
  - Dry skin [Unknown]
  - Gait disturbance [Unknown]
  - Fatigue [Unknown]
